FAERS Safety Report 16278943 (Version 1)
Quarter: 2019Q2

REPORT INFORMATION
  Report Type: Spontaneous
  Country: DE (occurrence: DE)
  Receive Date: 20190506
  Receipt Date: 20190506
  Transmission Date: 20190711
  Serious: Yes (Other)
  Sender: FDA-Public Use
  Company Number: PHHY2019DE102557

PATIENT
  Sex: Female
  Weight: 91 kg

DRUGS (2)
  1. METFORMIN [Suspect]
     Active Substance: METFORMIN HYDROCHLORIDE
     Indication: PRODUCT USED FOR UNKNOWN INDICATION
     Dosage: 1 DF, QD
     Route: 065
     Dates: start: 20050201
  2. METFORMIN [Suspect]
     Active Substance: METFORMIN HYDROCHLORIDE
     Dosage: 1 DF, QD
     Route: 065
     Dates: start: 20170601

REACTIONS (3)
  - Nausea [Unknown]
  - Neoplasm malignant [Unknown]
  - Weight increased [Unknown]

NARRATIVE: CASE EVENT DATE: 20050418
